FAERS Safety Report 8324809-7 (Version None)
Quarter: 2012Q2

REPORT INFORMATION
  Report Type: 
  Country: None (occurrence: None)
  Receive Date: 20120501
  Receipt Date: 20120419
  Transmission Date: 20120825
  Serious: Yes (Other)
  Sender: FDA-Public Use
  Company Number: JP-UCBSA-051661

PATIENT
  Age: 29 Year
  Sex: Female

DRUGS (3)
  1. MYSTAN [Suspect]
     Route: 048
  2. LAMICTAL [Suspect]
     Route: 048
  3. KEPPRA [Suspect]
     Indication: EPILEPSY
     Route: 048
     Dates: start: 20120123

REACTIONS (2)
  - ABORTION SPONTANEOUS [None]
  - PREGNANCY [None]
